FAERS Safety Report 24690769 (Version 1)
Quarter: 2024Q4

REPORT INFORMATION
  Report Type: Spontaneous
  Country: US (occurrence: US)
  Receive Date: 20241203
  Receipt Date: 20241203
  Transmission Date: 20250114
  Serious: Yes (Other)
  Sender: OXFORD PHARMACEUTICALS, LLC
  Company Number: US-Oxford Pharmaceuticals, LLC-2166389

PATIENT
  Age: 60 Year
  Sex: Female
  Weight: 94 kg

DRUGS (11)
  1. TIZANIDINE HYDROCHLORIDE [Suspect]
     Active Substance: TIZANIDINE HYDROCHLORIDE
     Indication: Product used for unknown indication
  2. KEVZARA [Suspect]
     Active Substance: SARILUMAB
  3. ZOLOFT [Concomitant]
     Active Substance: SERTRALINE HYDROCHLORIDE
  4. CYANOCOBALAMIN [Concomitant]
     Active Substance: CYANOCOBALAMIN
  5. METHOTREXATE [Concomitant]
     Active Substance: METHOTREXATE
  6. GABAPENTIN [Concomitant]
     Active Substance: GABAPENTIN
  7. ATIVAN [Concomitant]
     Active Substance: LORAZEPAM
  8. CALCIUM [Concomitant]
     Active Substance: CALCIUM
  9. ZOCOR [Concomitant]
     Active Substance: SIMVASTATIN
  10. VITAMIN D3 [Concomitant]
     Active Substance: CHOLECALCIFEROL
  11. CIPRO [Suspect]
     Active Substance: CIPROFLOXACIN HYDROCHLORIDE

REACTIONS (17)
  - Polymyalgia rheumatica [Not Recovered/Not Resolved]
  - Condition aggravated [Unknown]
  - Diverticulitis [Unknown]
  - Back pain [Unknown]
  - Musculoskeletal stiffness [Unknown]
  - Pain in extremity [Unknown]
  - Stomatitis [Unknown]
  - Dehydration [Unknown]
  - Hypotension [Unknown]
  - Drug interaction [Unknown]
  - Malaise [Unknown]
  - Joint stiffness [Unknown]
  - Arthralgia [Unknown]
  - Mobility decreased [Unknown]
  - Peripheral swelling [Unknown]
  - Injection site pain [Not Recovered/Not Resolved]
  - Rhinorrhoea [Not Recovered/Not Resolved]

NARRATIVE: CASE EVENT DATE: 20240421
